FAERS Safety Report 6901108-9 (Version None)
Quarter: 2010Q3

REPORT INFORMATION
  Report Type: 
  Country: None (occurrence: None)
  Receive Date: 20100803
  Receipt Date: 20100726
  Transmission Date: 20110219
  Serious: Yes (Other)
  Sender: FDA-Public Use
  Company Number: CN-GENZYME-CERZ-1001395

PATIENT

DRUGS (2)
  1. CEREZYME [Suspect]
     Indication: GAUCHER'S DISEASE
     Dosage: 15 U/KG, Q2W
     Dates: start: 20090801
  2. CEREZYME [Suspect]
     Dosage: 45 U/KG, Q2W
     Route: 042
     Dates: start: 20090601, end: 20090801

REACTIONS (3)
  - EPILEPSY [None]
  - FALL [None]
  - MENTAL IMPAIRMENT [None]
